FAERS Safety Report 18995629 (Version 6)
Quarter: 2021Q3

REPORT INFORMATION
  Report Type: Report from Study
  Country: JP (occurrence: JP)
  Receive Date: 20210310
  Receipt Date: 20210817
  Transmission Date: 20211014
  Serious: Yes (Hospitalization)
  Sender: FDA-Public Use
  Company Number: JP-SA-2020SA318258

PATIENT
  Age: 55 Year
  Sex: Male
  Weight: 78 kg

DRUGS (89)
  1. ISATUXIMAB [Suspect]
     Active Substance: ISATUXIMAB
     Dosage: DAILY DOSE: 780 MG
     Route: 041
     Dates: start: 20201224, end: 20201224
  2. CARFILZOMIB [Suspect]
     Active Substance: CARFILZOMIB
     Indication: PLASMA CELL MYELOMA
     Dosage: 45 MG/M2
     Route: 065
     Dates: start: 20200730, end: 20201029
  3. CARFILZOMIB [Suspect]
     Active Substance: CARFILZOMIB
     Dosage: 86 MG, QD
     Route: 065
     Dates: start: 20210520, end: 20210520
  4. DEXAMETHASONE. [Suspect]
     Active Substance: DEXAMETHASONE
     Dosage: 8 MG, QD
     Route: 042
     Dates: start: 20201126, end: 20201127
  5. DEXAMETHASONE. [Suspect]
     Active Substance: DEXAMETHASONE
     Dosage: 4 MG, QD
     Route: 042
     Dates: start: 20201224, end: 20201225
  6. DEXAMETHASONE. [Suspect]
     Active Substance: DEXAMETHASONE
     Dosage: DAILY DOSE: 4 MG
     Route: 048
     Dates: start: 20210114, end: 20210114
  7. MIYA?BM [Concomitant]
     Active Substance: CLOSTRIDIUM BUTYRICUM SPORES STRAIN M-55
     Indication: CONSTIPATION PROPHYLAXIS
     Dosage: 1 DF, TID
     Route: 048
  8. PARACETAMOL [Concomitant]
     Active Substance: ACETAMINOPHEN
     Dosage: 800 MG/DAY
     Route: 048
     Dates: start: 20200604, end: 20200604
  9. HUMAN NORMAL IMMUNOGLOBULIN [Concomitant]
     Active Substance: HUMAN IMMUNOGLOBULIN G
     Dosage: UNK
     Route: 042
     Dates: start: 20200605, end: 20200605
  10. HUMAN NORMAL IMMUNOGLOBULIN [Concomitant]
     Active Substance: HUMAN IMMUNOGLOBULIN G
     Dosage: UNK
     Route: 042
     Dates: start: 20201225, end: 20201225
  11. ISATUXIMAB [Suspect]
     Active Substance: ISATUXIMAB
     Indication: PLASMA CELL MYELOMA
     Dosage: 10 MG/KG (DAY1, DAY15)
     Route: 041
     Dates: start: 20200730, end: 20201029
  12. ISATUXIMAB [Suspect]
     Active Substance: ISATUXIMAB
     Dosage: 800 MG, QOW
     Route: 041
     Dates: start: 20210218, end: 20210304
  13. ISATUXIMAB [Suspect]
     Active Substance: ISATUXIMAB
     Dosage: 770 MG, QD
     Route: 041
     Dates: start: 20210610, end: 20210610
  14. CARFILZOMIB [Suspect]
     Active Substance: CARFILZOMIB
     Dosage: 45 MG/M2 (DAYS 1, 2, 8, 9, 15, 16)
     Route: 065
     Dates: start: 20180307, end: 20200709
  15. CARFILZOMIB [Suspect]
     Active Substance: CARFILZOMIB
     Dosage: 86 MG, QD
     Route: 065
     Dates: start: 20210325, end: 20210325
  16. CARFILZOMIB [Suspect]
     Active Substance: CARFILZOMIB
     Dosage: 86 MG, QD
     Route: 065
     Dates: start: 20210402, end: 20210402
  17. CARFILZOMIB [Suspect]
     Active Substance: CARFILZOMIB
     Dosage: 86 MG, QD
     Route: 065
     Dates: start: 20210422, end: 20210422
  18. CARFILZOMIB [Suspect]
     Active Substance: CARFILZOMIB
     Dosage: 86 MG, QD
     Route: 065
     Dates: start: 20210527, end: 20210527
  19. DEXAMETHASONE. [Suspect]
     Active Substance: DEXAMETHASONE
     Dosage: 8 MG, QD
     Route: 042
     Dates: start: 20201203, end: 20201204
  20. DEXAMETHASONE. [Suspect]
     Active Substance: DEXAMETHASONE
     Dosage: DAILY DOSE: 4 MG
     Route: 048
     Dates: start: 20210115, end: 20210115
  21. PARACETAMOL [Concomitant]
     Active Substance: ACETAMINOPHEN
     Indication: PROPHYLAXIS
     Dosage: 800 MG/DAY
     Route: 048
     Dates: start: 20200806, end: 20200806
  22. PARACETAMOL [Concomitant]
     Active Substance: ACETAMINOPHEN
     Dosage: 800 MG/DAY
     Route: 048
     Dates: start: 20200618, end: 20200618
  23. PARACETAMOL [Concomitant]
     Active Substance: ACETAMINOPHEN
     Dosage: 800 MG/DAY
     Route: 042
     Dates: start: 20200709, end: 20200709
  24. DEXCHLORPHENIRAMINE MALEATE. [Concomitant]
     Active Substance: DEXCHLORPHENIRAMINE MALEATE
     Dosage: 5 MG, QOW
     Route: 042
     Dates: start: 20201015, end: 20201029
  25. DEXCHLORPHENIRAMINE MALEATE. [Concomitant]
     Active Substance: DEXCHLORPHENIRAMINE MALEATE
     Dosage: 5.0 MG/DAY
     Route: 042
     Dates: start: 20210304, end: 20210304
  26. HUMAN NORMAL IMMUNOGLOBULIN [Concomitant]
     Active Substance: HUMAN IMMUNOGLOBULIN G
     Dosage: UNK
     Route: 042
     Dates: start: 20200702, end: 20200702
  27. HUMAN NORMAL IMMUNOGLOBULIN [Concomitant]
     Active Substance: HUMAN IMMUNOGLOBULIN G
     Dosage: UNK
     Route: 042
     Dates: start: 20201111, end: 20201111
  28. HUMAN NORMAL IMMUNOGLOBULIN [Concomitant]
     Active Substance: HUMAN IMMUNOGLOBULIN G
     Dosage: UNK
     Route: 042
     Dates: start: 20210121, end: 20210121
  29. CARFILZOMIB [Suspect]
     Active Substance: CARFILZOMIB
     Dosage: 86 MG, QD
     Route: 065
     Dates: start: 20210401, end: 20210401
  30. CARFILZOMIB [Suspect]
     Active Substance: CARFILZOMIB
     Dosage: 86 MG, QD
     Route: 065
     Dates: start: 20210514, end: 20210514
  31. CARFILZOMIB [Suspect]
     Active Substance: CARFILZOMIB
     Dosage: 86 MG, QD
     Route: 065
     Dates: start: 20210521, end: 20210521
  32. DEXAMETHASONE. [Suspect]
     Active Substance: DEXAMETHASONE
     Dosage: DAILY DOSE: 12 MG
     Route: 042
     Dates: start: 20200918
  33. DEXAMETHASONE. [Suspect]
     Active Substance: DEXAMETHASONE
     Dosage: 12 MG, QD
     Route: 048
     Dates: start: 20201022, end: 20201023
  34. DEXAMETHASONE. [Suspect]
     Active Substance: DEXAMETHASONE
     Dosage: DAILY DOSE: 4 MG
     Route: 042
     Dates: start: 20210107, end: 20210108
  35. ACICLOVIR [Concomitant]
     Active Substance: ACYCLOVIR
     Indication: INFECTION PROPHYLAXIS
     Dosage: 1 DF, QD
     Route: 048
     Dates: start: 20180817
  36. DEXCHLORPHENIRAMINE MALEATE. [Concomitant]
     Active Substance: DEXCHLORPHENIRAMINE MALEATE
     Dosage: 20 MG/DAY
     Route: 042
     Dates: start: 20200604, end: 20200604
  37. ISATUXIMAB [Suspect]
     Active Substance: ISATUXIMAB
     Dosage: 790 MG, QD
     Route: 041
     Dates: start: 20210415, end: 20210415
  38. CARFILZOMIB [Suspect]
     Active Substance: CARFILZOMIB
     Dosage: 86 MG, QD
     Route: 065
     Dates: start: 20201126, end: 20201127
  39. CARFILZOMIB [Suspect]
     Active Substance: CARFILZOMIB
     Dosage: 86 MG, QD
     Route: 065
     Dates: start: 20201210, end: 20201211
  40. CARFILZOMIB [Suspect]
     Active Substance: CARFILZOMIB
     Dosage: DAILY DOSE: 86 MG
     Route: 065
     Dates: start: 20210304, end: 20210304
  41. CARFILZOMIB [Suspect]
     Active Substance: CARFILZOMIB
     Dosage: 86 MG, QD
     Route: 065
     Dates: start: 20210415, end: 20210415
  42. CARFILZOMIB [Suspect]
     Active Substance: CARFILZOMIB
     Dosage: 86 MG, QD
     Route: 065
     Dates: start: 20210416, end: 20210416
  43. CARFILZOMIB [Suspect]
     Active Substance: CARFILZOMIB
     Dosage: 86 MG, QD
     Route: 065
     Dates: start: 20210513, end: 20210513
  44. CARFILZOMIB [Suspect]
     Active Substance: CARFILZOMIB
     Dosage: 85 MG, QD
     Route: 065
     Dates: start: 20210611, end: 20210611
  45. CARFILZOMIB [Suspect]
     Active Substance: CARFILZOMIB
     Dosage: 85 MG, QD
     Route: 065
     Dates: start: 20210617, end: 20210617
  46. DEXAMETHASONE. [Suspect]
     Active Substance: DEXAMETHASONE
     Dosage: DOSE DECREASED TO 8 MG
     Route: 065
     Dates: start: 20200730, end: 20201029
  47. HUMAN NORMAL IMMUNOGLOBULIN [Concomitant]
     Active Substance: HUMAN IMMUNOGLOBULIN G
     Dosage: UNK
     Route: 042
     Dates: start: 20210125, end: 20210125
  48. ISATUXIMAB [Suspect]
     Active Substance: ISATUXIMAB
     Dosage: 800 MG, QOW
     Route: 041
     Dates: start: 20201126, end: 20201210
  49. CARFILZOMIB [Suspect]
     Active Substance: CARFILZOMIB
     Dosage: DAILY DOSE: 86 MG
     Route: 065
     Dates: start: 20210218, end: 20210218
  50. CARFILZOMIB [Suspect]
     Active Substance: CARFILZOMIB
     Dosage: 86 MG, QD
     Route: 065
     Dates: start: 20210318, end: 20210318
  51. CARFILZOMIB [Suspect]
     Active Substance: CARFILZOMIB
     Dosage: 86 MG, QD
     Route: 065
     Dates: start: 20210319, end: 20210319
  52. DEXAMETHASONE. [Suspect]
     Active Substance: DEXAMETHASONE
     Dosage: 8 MG, QD
     Route: 042
     Dates: start: 20201210, end: 20201211
  53. BAKTAR [Concomitant]
     Active Substance: SULFAMETHOXAZOLE\TRIMETHOPRIM
     Indication: INFECTION PROPHYLAXIS
     Dosage: 1 DF, BID
     Route: 048
     Dates: start: 20180308
  54. FAMOTIDINE. [Concomitant]
     Active Substance: FAMOTIDINE
     Dosage: 20 MG/DAY
     Route: 042
     Dates: start: 20200709, end: 20200709
  55. DEXCHLORPHENIRAMINE MALEATE. [Concomitant]
     Active Substance: DEXCHLORPHENIRAMINE MALEATE
     Dosage: 5 MG, QOW
     Route: 042
     Dates: start: 20201126, end: 20210107
  56. HUMAN NORMAL IMMUNOGLOBULIN [Concomitant]
     Active Substance: HUMAN IMMUNOGLOBULIN G
     Indication: PRODUCT USED FOR UNKNOWN INDICATION
     Dosage: UNK
     Route: 042
     Dates: start: 20200807, end: 20200807
  57. ISATUXIMAB [Suspect]
     Active Substance: ISATUXIMAB
     Dosage: 10 MG/KG
     Route: 041
     Dates: start: 20180307, end: 20200709
  58. ISATUXIMAB [Suspect]
     Active Substance: ISATUXIMAB
     Dosage: DAILY DOSE: 780 MG
     Route: 041
     Dates: start: 20210107, end: 20210107
  59. ISATUXIMAB [Suspect]
     Active Substance: ISATUXIMAB
     Dosage: 790 MG, QD
     Route: 041
     Dates: start: 20210401, end: 20210401
  60. CARFILZOMIB [Suspect]
     Active Substance: CARFILZOMIB
     Dosage: 86 MG, QD
     Route: 065
     Dates: start: 20210430, end: 20210430
  61. CARFILZOMIB [Suspect]
     Active Substance: CARFILZOMIB
     Dosage: 86 MG, QD
     Route: 065
     Dates: start: 20210528, end: 20210528
  62. DEXAMETHASONE. [Suspect]
     Active Substance: DEXAMETHASONE
     Indication: PLASMA CELL MYELOMA
     Dosage: 12 MG(DAY1,2,8,9,15,16)
     Route: 042
     Dates: start: 20180307, end: 20200709
  63. FAMOTIDINE. [Concomitant]
     Active Substance: FAMOTIDINE
     Dosage: 20 MG/DAY
     Route: 042
     Dates: start: 20200604, end: 20200604
  64. FAMOTIDINE. [Concomitant]
     Active Substance: FAMOTIDINE
     Dosage: 20 MG/DAY
     Route: 042
     Dates: start: 20200618, end: 20200618
  65. DEXCHLORPHENIRAMINE MALEATE. [Concomitant]
     Active Substance: DEXCHLORPHENIRAMINE MALEATE
     Dosage: 20 MG/DAY
     Route: 042
     Dates: start: 20200709, end: 20200709
  66. ISATUXIMAB [Suspect]
     Active Substance: ISATUXIMAB
     Dosage: 790 MG, QD
     Route: 041
     Dates: start: 20210318, end: 20210318
  67. ISATUXIMAB [Suspect]
     Active Substance: ISATUXIMAB
     Dosage: 780 MG, QD
     Route: 041
     Dates: start: 20210513, end: 20210513
  68. ISATUXIMAB [Suspect]
     Active Substance: ISATUXIMAB
     Dosage: 780 MG, QD
     Route: 041
     Dates: start: 20210527, end: 20210527
  69. CARFILZOMIB [Suspect]
     Active Substance: CARFILZOMIB
     Dosage: 86 MG, QD
     Route: 065
     Dates: start: 20201203, end: 20201204
  70. CARFILZOMIB [Suspect]
     Active Substance: CARFILZOMIB
     Dosage: 86 MG, QD
     Route: 065
     Dates: start: 20201224, end: 20201225
  71. CARFILZOMIB [Suspect]
     Active Substance: CARFILZOMIB
     Dosage: 86 MG, QD
     Route: 065
     Dates: start: 20210423, end: 20210423
  72. CARFILZOMIB [Suspect]
     Active Substance: CARFILZOMIB
     Dosage: 85 MG, QD
     Route: 065
     Dates: start: 20210610, end: 20210610
  73. CARFILZOMIB [Suspect]
     Active Substance: CARFILZOMIB
     Dosage: 68 MG, QD
     Route: 065
     Dates: start: 20210618, end: 20210618
  74. DEXAMETHASONE. [Suspect]
     Active Substance: DEXAMETHASONE
     Dosage: 12 MG, QD
     Route: 048
     Dates: start: 20200924, end: 20200925
  75. DEXAMETHASONE. [Suspect]
     Active Substance: DEXAMETHASONE
     Dosage: DAILY DOSE: 12 MG
     Route: 042
     Dates: start: 20201016
  76. FEBURIC [Concomitant]
     Active Substance: FEBUXOSTAT
     Indication: HYPERURICAEMIA
     Dosage: 1 DF, QD
     Route: 048
  77. REBAMIPIDE [Concomitant]
     Active Substance: REBAMIPIDE
     Indication: GASTRITIS PROPHYLAXIS
     Dosage: 1 DF, TID
     Route: 048
  78. AMLODIPINE OD TYK [Concomitant]
     Active Substance: AMLODIPINE BESYLATE
     Indication: HYPERTENSION
     Dosage: 3 DF, QD
     Route: 048
     Dates: start: 20200213
  79. FAMOTIDINE. [Concomitant]
     Active Substance: FAMOTIDINE
     Indication: PROPHYLAXIS
     Dosage: 20 MG/DAY
     Route: 042
     Dates: start: 20200806, end: 20200806
  80. DEXCHLORPHENIRAMINE MALEATE. [Concomitant]
     Active Substance: DEXCHLORPHENIRAMINE MALEATE
     Indication: PROPHYLAXIS
     Dosage: 5 MG/DAY
     Route: 042
     Dates: start: 20200806, end: 20200806
  81. DEXCHLORPHENIRAMINE MALEATE. [Concomitant]
     Active Substance: DEXCHLORPHENIRAMINE MALEATE
     Dosage: 5.0 MG/DAY
     Route: 042
     Dates: start: 20200618, end: 20200618
  82. SHAKUYAKUKANZOTO [Concomitant]
     Active Substance: HERBALS
     Indication: PRODUCT USED FOR UNKNOWN INDICATION
     Dosage: UNK
     Route: 048
     Dates: start: 20190516
  83. HUMAN NORMAL IMMUNOGLOBULIN [Concomitant]
     Active Substance: HUMAN IMMUNOGLOBULIN G
     Dosage: UNK
     Route: 042
     Dates: start: 20210219, end: 20210219
  84. ATORVASTATIN CALCIUM. [Concomitant]
     Active Substance: ATORVASTATIN CALCIUM
     Indication: HYPERLIPIDAEMIA
     Dosage: 1 DF, QD
     Route: 048
     Dates: start: 20200903
  85. CARFILZOMIB [Suspect]
     Active Substance: CARFILZOMIB
     Dosage: 86 MG, QD
     Route: 065
     Dates: start: 20210107, end: 20210108
  86. DEXAMETHASONE. [Suspect]
     Active Substance: DEXAMETHASONE
     Dosage: 12 MG
     Route: 048
     Dates: start: 20180307, end: 20200709
  87. DEXAMETHASONE. [Suspect]
     Active Substance: DEXAMETHASONE
     Dosage: 8 MG, QD
     Route: 048
     Dates: start: 20201217, end: 20201218
  88. NEXIUM [Concomitant]
     Active Substance: ESOMEPRAZOLE MAGNESIUM
     Indication: GASTRITIS PROPHYLAXIS
     Dosage: 1 DF, QD
     Route: 048
  89. DEXCHLORPHENIRAMINE MALEATE. [Concomitant]
     Active Substance: DEXCHLORPHENIRAMINE MALEATE
     Dosage: 5 MG, QOW
     Route: 042
     Dates: start: 20201126, end: 20201224

REACTIONS (2)
  - Cytomegalovirus viraemia [Recovered/Resolved]
  - Cytomegalovirus viraemia [Recovered/Resolved]

NARRATIVE: CASE EVENT DATE: 20200820
